FAERS Safety Report 6606677-4 (Version None)
Quarter: 2010Q1

REPORT INFORMATION
  Report Type: 
  Country: None (occurrence: None)
  Receive Date: 20100226
  Receipt Date: 20100217
  Transmission Date: 20100710
  Serious: Yes (Hospitalization)
  Sender: FDA-Public Use
  Company Number: JP-ABBOTT-09P-087-0576751-00

PATIENT
  Sex: Female

DRUGS (9)
  1. HUMIRA [Suspect]
     Indication: RHEUMATOID ARTHRITIS
     Route: 058
     Dates: start: 20090523, end: 20090523
  2. METHOTREXATE [Suspect]
     Indication: RHEUMATOID ARTHRITIS
     Route: 048
     Dates: start: 20011105
  3. PREDNISOLONE [Suspect]
     Indication: RHEUMATOID ARTHRITIS
     Route: 048
     Dates: start: 20011029, end: 20080430
  4. PREDNISOLONE [Suspect]
     Route: 048
     Dates: start: 20080501
  5. FOLIC ACID [Concomitant]
     Indication: PROPHYLAXIS
     Route: 048
     Dates: start: 20060415
  6. FOLIC ACID [Concomitant]
     Indication: ADVERSE REACTION
  7. LOXOPROFEN SODIUM [Concomitant]
     Indication: RHEUMATOID ARTHRITIS
     Dosage: 120 MG DAILY
     Route: 048
     Dates: start: 20011029
  8. NIZATIDINE [Concomitant]
     Indication: GASTRITIS PROPHYLAXIS
     Dosage: 300 MG DAILY
     Route: 048
     Dates: start: 20071102
  9. ALENDRONATE SODIUM [Concomitant]
     Indication: OSTEOPOROSIS
     Route: 048

REACTIONS (1)
  - PYREXIA [None]
